FAERS Safety Report 6756164-8 (Version None)
Quarter: 2010Q2

REPORT INFORMATION
  Report Type: 
  Country: None (occurrence: None)
  Receive Date: 20100604
  Receipt Date: 20100525
  Transmission Date: 20101027
  Serious: Yes (Other)
  Sender: FDA-Public Use
  Company Number: NO-JNJFOC-20100108310

PATIENT
  Sex: Female

DRUGS (1)
  1. STELARA [Suspect]
     Indication: PSORIASIS
     Route: 058

REACTIONS (7)
  - ASTHENIA [None]
  - DEPRESSION [None]
  - FATIGUE [None]
  - HEADACHE [None]
  - NAUSEA [None]
  - SKIN LESION [None]
  - SYNCOPE [None]
